FAERS Safety Report 6897056-3 (Version None)
Quarter: 2010Q3

REPORT INFORMATION
  Report Type: 
  Country: None (occurrence: None)
  Receive Date: 20100729
  Receipt Date: 20100723
  Transmission Date: 20110219
  Serious: Yes (Hospitalization)
  Sender: FDA-Public Use
  Company Number: 2010SP031878

PATIENT
  Age: 47 Year
  Sex: Male

DRUGS (9)
  1. MIRTAZAPINE [Suspect]
     Indication: DEPRESSION
     Dosage: 15 MG;QD;PO, 30 MG;QD;PO, 45 MG;QD;PO
     Route: 048
     Dates: start: 20091217, end: 20091222
  2. MIRTAZAPINE [Suspect]
     Indication: DEPRESSION
     Dosage: 15 MG;QD;PO, 30 MG;QD;PO, 45 MG;QD;PO
     Route: 048
     Dates: start: 20091223, end: 20091228
  3. MIRTAZAPINE [Suspect]
     Indication: DEPRESSION
     Dosage: 15 MG;QD;PO, 30 MG;QD;PO, 45 MG;QD;PO
     Route: 048
     Dates: start: 20091229, end: 20100119
  4. CARBMAZEPINE [Suspect]
     Indication: DEPRESSION
     Dosage: 450 MG;QD;PO, 600 MG;QD;PO, 300 MG;QD;PO, 200 MG;QD;PO, 100 MG;QD;PO
     Route: 048
     Dates: start: 20100112, end: 20100112
  5. CARBMAZEPINE [Suspect]
     Indication: DEPRESSION
     Dosage: 450 MG;QD;PO, 600 MG;QD;PO, 300 MG;QD;PO, 200 MG;QD;PO, 100 MG;QD;PO
     Route: 048
     Dates: start: 20100113, end: 20100113
  6. CARBMAZEPINE [Suspect]
     Indication: DEPRESSION
     Dosage: 450 MG;QD;PO, 600 MG;QD;PO, 300 MG;QD;PO, 200 MG;QD;PO, 100 MG;QD;PO
     Route: 048
     Dates: start: 20100114, end: 20100114
  7. CARBMAZEPINE [Suspect]
     Indication: DEPRESSION
     Dosage: 450 MG;QD;PO, 600 MG;QD;PO, 300 MG;QD;PO, 200 MG;QD;PO, 100 MG;QD;PO
     Route: 048
     Dates: start: 20100115, end: 20100115
  8. CARBMAZEPINE [Suspect]
     Indication: DEPRESSION
     Dosage: 450 MG;QD;PO, 600 MG;QD;PO, 300 MG;QD;PO, 200 MG;QD;PO, 100 MG;QD;PO
     Route: 048
     Dates: start: 20100116, end: 20100116
  9. ACC 200 [Concomitant]

REACTIONS (3)
  - BUNDLE BRANCH BLOCK LEFT [None]
  - CARDIAC DISORDER [None]
  - ELECTROCARDIOGRAM QT PROLONGED [None]
